FAERS Safety Report 18300293 (Version 1)
Quarter: 2020Q3

REPORT INFORMATION
  Report Type: Spontaneous
  Country: PT (occurrence: PT)
  Receive Date: 20200923
  Receipt Date: 20200923
  Transmission Date: 20201103
  Serious: Yes (Death, Other)
  Sender: FDA-Public Use
  Company Number: NVSC2020PT257942

PATIENT
  Age: 53 Year
  Sex: Male

DRUGS (2)
  1. FLUVOXAMINE [Interacting]
     Active Substance: FLUVOXAMINE
     Indication: PRODUCT USED FOR UNKNOWN INDICATION
     Dosage: UNK
     Route: 065
  2. OLANZAPINE. [Suspect]
     Active Substance: OLANZAPINE
     Indication: PRODUCT USED FOR UNKNOWN INDICATION
     Dosage: UNK
     Route: 065

REACTIONS (4)
  - Completed suicide [Fatal]
  - Drug interaction [Unknown]
  - Antipsychotic drug level above therapeutic [Unknown]
  - Hanging [Fatal]
